FAERS Safety Report 4508016-1 (Version None)
Quarter: 2004Q4

REPORT INFORMATION
  Report Type: 
  Country: None (occurrence: None)
  Receive Date: 20041122
  Receipt Date: 20041122
  Transmission Date: 20050328
  Serious: Yes (Hospitalization)
  Sender: FDA-Public Use
  Company Number: None

PATIENT
  Age: 68 Year
  Sex: Male
  Weight: 78 kg

DRUGS (2)
  1. MORPHINE [Suspect]
     Dosage: 15MG BID ORAL
     Route: 048
     Dates: start: 20040526, end: 20040927
  2. OXYCODONE HCL [Suspect]
     Dosage: 5MG  Q4-6H PRN ORAL
     Route: 048
     Dates: start: 20040526, end: 20040927

REACTIONS (1)
  - CONSTIPATION [None]
